FAERS Safety Report 8175800-5 (Version None)
Quarter: 2012Q1

REPORT INFORMATION
  Report Type: 
  Country: None (occurrence: None)
  Receive Date: 20120228
  Receipt Date: 20120217
  Transmission Date: 20120608
  Serious: Yes (Other)
  Sender: FDA-Public Use
  Company Number: AUR-APL-2012-01053

PATIENT
  Sex: Female

DRUGS (1)
  1. LISINOPRIL [Suspect]
     Indication: PRODUCT USED FOR UNKNOWN INDICATION

REACTIONS (12)
  - NERVE INJURY [None]
  - SWELLING FACE [None]
  - MALAISE [None]
  - ASTHENIA [None]
  - WEIGHT DECREASED [None]
  - EYE SWELLING [None]
  - DYSGEUSIA [None]
  - DYSSTASIA [None]
  - MYOCARDIAL INFARCTION [None]
  - DECREASED APPETITE [None]
  - GAIT DISTURBANCE [None]
  - APHAGIA [None]
